FAERS Safety Report 7199124-8 (Version None)
Quarter: 2010Q4

REPORT INFORMATION
  Report Type: 
  Country: None (occurrence: None)
  Receive Date: 20101126
  Receipt Date: 20100809
  Transmission Date: 20110411
  Serious: Yes (Hospitalization)
  Sender: FDA-Public Use
  Company Number: CIP10001240

PATIENT
  Sex: Female

DRUGS (4)
  1. ACTONEL [Suspect]
     Dosage: 35 MG ONCE WEEKLY, ORAL
     Route: 048
     Dates: start: 20020806, end: 20030913
  2. FOSAMAX [Suspect]
     Indication: PRODUCT USED FOR UNKNOWN INDICATION
     Dosage: 70 MG ONCE WEEKLY, ORAL
     Route: 048
     Dates: start: 20020318, end: 20080901
  3. OXYBUTIN (OXYBUTYNIN HYDROCHLORIDE) [Concomitant]
  4. TRIAMTERENE AND HYDROCHLOROTHIAZIDE (HYDROCHLOROTHIAZIDE, TRIAMTERENE) [Concomitant]

REACTIONS (12)
  - ABSCESS [None]
  - BONE DENSITY DECREASED [None]
  - DENTAL OPERATION [None]
  - DEVICE FAILURE [None]
  - FISTULA [None]
  - FISTULA DISCHARGE [None]
  - GINGIVAL PAIN [None]
  - OSTEONECROSIS OF JAW [None]
  - SENSITIVITY OF TEETH [None]
  - SWELLING [None]
  - TOOTHACHE [None]
  - WEIGHT DECREASED [None]
